FAERS Safety Report 5997636-3 (Version None)
Quarter: 2008Q4

REPORT INFORMATION
  Report Type: 
  Country: None (occurrence: None)
  Receive Date: 20081212
  Receipt Date: 20081117
  Transmission Date: 20090506
  Serious: No
  Sender: FDA-Public Use
  Company Number: US-ABBOTT-08P-163-0488579-00

PATIENT
  Sex: Female
  Weight: 77.18 kg

DRUGS (7)
  1. HUMIRA [Suspect]
     Indication: CROHN'S DISEASE
     Dates: start: 20080811
  2. FENOFIBRATE [Concomitant]
     Indication: DRUG USE FOR UNKNOWN INDICATION
     Dosage: UN KNOWN
  3. MESALAMINE [Concomitant]
     Indication: COLITIS ULCERATIVE
     Dosage: SUPPOSITORY
  4. QUINAPRIL HCL [Concomitant]
     Indication: HYPERTENSION
     Dosage: UNKNOWN
  5. CELECOXIB [Concomitant]
     Indication: ARTHRITIS
     Dosage: UNKNOWN
  6. MESALAMINE [Concomitant]
     Dosage: UNKNOWN
  7. MOMETASONE FUROATE [Concomitant]
     Indication: SEASONAL ALLERGY
     Dosage: UNKNOWN

REACTIONS (3)
  - DRUG DELIVERY SYSTEM MALFUNCTION [None]
  - INCORRECT DOSE ADMINISTERED [None]
  - INJECTION SITE HAEMORRHAGE [None]
